FAERS Safety Report 15480130 (Version 1)
Quarter: 2018Q4

REPORT INFORMATION
  Report Type: Spontaneous
  Country: US (occurrence: US)
  Receive Date: 20181009
  Receipt Date: 20181009
  Transmission Date: 20190205
  Serious: Yes (Other)
  Sender: FDA-Public Use
  Company Number: PHEH2018US042437

PATIENT
  Age: 42 Year

DRUGS (2)
  1. NILOTINIB [Suspect]
     Active Substance: NILOTINIB
     Indication: CHRONIC MYELOID LEUKAEMIA
     Dosage: 400 MG, BID
     Route: 048
  2. NILOTINIB [Suspect]
     Active Substance: NILOTINIB
     Dosage: 300 MG, BID
     Route: 048
     Dates: start: 201606

REACTIONS (4)
  - Cytogenetic analysis abnormal [Unknown]
  - Therapeutic response decreased [Unknown]
  - Acne [Recovered/Resolved]
  - Dermatitis [Recovered/Resolved]
